FAERS Safety Report 20307438 (Version 1)
Quarter: 2022Q1

REPORT INFORMATION
  Report Type: Spontaneous
  Country: HU (occurrence: HU)
  Receive Date: 20220107
  Receipt Date: 20220107
  Transmission Date: 20220424
  Serious: Yes (Other)
  Sender: FDA-Public Use
  Company Number: HU-NOVARTISPH-NVSC2022HU000556

PATIENT
  Age: 65 Year
  Sex: Female

DRUGS (9)
  1. PANTOPRAZOLE SODIUM [Suspect]
     Active Substance: PANTOPRAZOLE SODIUM
     Indication: Prophylaxis
     Dosage: 40 MG, QD (2 WEEKS TOGETHER WITH ARCOXIA AND SIRDALUD, THEN STOPPED)
     Route: 048
  2. TIZANIDINE [Suspect]
     Active Substance: TIZANIDINE
     Indication: Product used for unknown indication
     Dosage: 1 DOSAGE FORM (1 TABLET IN EVENING)
     Route: 048
  3. ARCOXIA [Suspect]
     Active Substance: ETORICOXIB
     Indication: Back disorder
     Dosage: UNK
     Route: 065
  4. ARCOXIA [Suspect]
     Active Substance: ETORICOXIB
     Dosage: 1 UNK, QD (ONCE DAILY IN THE MORNING, TABLET)
     Route: 048
  5. TRAMADOL [Concomitant]
     Active Substance: TRAMADOL
     Indication: Product used for unknown indication
     Dosage: 100 MG, AS NEEDED
     Route: 048
  6. FLECTOR RAPID [Concomitant]
     Indication: Product used for unknown indication
     Dosage: 50 MG AS NEEDED (FLECTOR RAPID)
     Route: 065
  7. ACEMETACIN [Concomitant]
     Active Substance: ACEMETACIN
     Indication: Product used for unknown indication
     Dosage: UNK, RANTUDIL FORTE AS NEEDED
     Route: 048
  8. BISOPROLOL FUMARATE [Concomitant]
     Active Substance: BISOPROLOL FUMARATE
     Indication: Hypertension
     Dosage: UNK, HALF TABLET 2X A DAY
     Route: 048
     Dates: start: 2011
  9. RENITEC [Concomitant]
     Indication: Hypertension
     Dosage: 2 UNK, QD (BID, TAKEN FOR 10 YEARS)
     Route: 048
     Dates: start: 2011

REACTIONS (10)
  - Sensitive skin [Recovered/Resolved]
  - Hypertensive crisis [Recovered/Resolved]
  - Heart rate increased [Recovered/Resolved]
  - Swelling face [Recovered/Resolved]
  - Product prescribing issue [Unknown]
  - Incorrect dose administered [Unknown]
  - Malaise [Recovered/Resolved]
  - Erythema [Recovered/Resolved]
  - Dyspnoea [Recovered/Resolved]
  - Peripheral swelling [Recovered/Resolved]

NARRATIVE: CASE EVENT DATE: 20211209
